FAERS Safety Report 7138408-6 (Version None)
Quarter: 2010Q4

REPORT INFORMATION
  Report Type: 
  Country: None (occurrence: None)
  Receive Date: 20101206
  Receipt Date: 20101129
  Transmission Date: 20110411
  Serious: Yes (Death)
  Sender: FDA-Public Use
  Company Number: JP-ELI_LILLY_AND_COMPANY-JP201009000011

PATIENT
  Sex: Male
  Weight: 41.5 kg

DRUGS (2)
  1. TADALAFIL [Suspect]
     Indication: PULMONARY ARTERIAL HYPERTENSION
     Dosage: 20 MG, DAILY (1/D)
     Route: 048
     Dates: start: 20100730, end: 20100807
  2. DORNER [Concomitant]
     Indication: PULMONARY ARTERIAL HYPERTENSION
     Dosage: 40 UG, DAILY (1/D)
     Route: 048
     Dates: start: 20100730, end: 20100807

REACTIONS (1)
  - DISEASE PROGRESSION [None]
